FAERS Safety Report 21986227 (Version 4)
Quarter: 2023Q2

REPORT INFORMATION
  Report Type: Spontaneous
  Country: BG (occurrence: BG)
  Receive Date: 20230213
  Receipt Date: 20230623
  Transmission Date: 20230722
  Serious: Yes (Hospitalization, Other)
  Sender: FDA-Public Use
  Company Number: BG-002147023-NVSC2023BG008741

PATIENT
  Age: 43 Year
  Sex: Female

DRUGS (1)
  1. AMLODIPINE BESYLATE\VALSARTAN [Suspect]
     Active Substance: AMLODIPINE BESYLATE\VALSARTAN
     Indication: Hypertension
     Dosage: 1 DF Q2D, (160MG/5MG,EVERY 2ND DAY SYSTEMICALLY)
     Route: 065

REACTIONS (2)
  - Melanocytic naevus [Recovered/Resolved]
  - Pigmentation disorder [Recovered/Resolved]
